FAERS Safety Report 21418499 (Version 2)
Quarter: 2023Q1

REPORT INFORMATION
  Report Type: Report from Study
  Country: NL (occurrence: NL)
  Receive Date: 20221006
  Receipt Date: 20230214
  Transmission Date: 20230418
  Serious: Yes (Hospitalization)
  Sender: FDA-Public Use
  Company Number: NL-JNJFOC-20220434985

PATIENT
  Age: 59 Year
  Sex: Male
  Weight: 100 kg

DRUGS (22)
  1. TECLISTAMAB [Suspect]
     Active Substance: TECLISTAMAB
     Indication: Plasma cell myeloma
     Dosage: (10MG/ML) VIAL?DOSE ALSO REPORTED AS 3.0 ML FROM 23-FEB-2022 AND 25-FEB-2022.
     Route: 058
     Dates: start: 20220223, end: 20220223
  2. TECLISTAMAB [Suspect]
     Active Substance: TECLISTAMAB
     Dosage: 2 (10MG/ML) VIAL MEDICAL NUMBER 367-7573 AND 526-7181
     Dates: start: 20220225, end: 20220225
  3. TECLISTAMAB [Suspect]
     Active Substance: TECLISTAMAB
     Dosage: (90 MG/ML) VIAL MOST RECENT DOSE 12-APR-2022?DOSE ALSO REPORTED AS 1.62 ML FROM 01-MAR-2022 TO 19-AP
     Route: 058
     Dates: start: 20220301
  4. DARATUMUMAB [Suspect]
     Active Substance: DARATUMUMAB
     Indication: Plasma cell myeloma
     Route: 058
     Dates: start: 20220222
  5. PREGABALIN [Concomitant]
     Active Substance: PREGABALIN
     Indication: Oligoarthritis
     Route: 048
     Dates: start: 20181106
  6. COLCHICINE [Concomitant]
     Active Substance: COLCHICINE
     Indication: Gout
     Route: 048
     Dates: start: 20190109, end: 20220428
  7. OMEPRAZOLE [Concomitant]
     Active Substance: OMEPRAZOLE
     Indication: Prophylaxis
     Route: 048
     Dates: start: 20200307
  8. SULFAMETHOXAZOLE\TRIMETHOPRIM [Concomitant]
     Active Substance: SULFAMETHOXAZOLE\TRIMETHOPRIM
     Indication: Infection prophylaxis
     Route: 048
     Dates: start: 20200318
  9. ALLOPURINOL [Concomitant]
     Active Substance: ALLOPURINOL
     Indication: Gout
     Route: 048
     Dates: start: 20181228
  10. CHOLESTYRAMINE [Concomitant]
     Active Substance: CHOLESTYRAMINE
     Indication: Constipation prophylaxis
     Route: 048
     Dates: start: 20211006
  11. CALCIUMCARBONAAT [Concomitant]
     Indication: Prophylaxis
     Route: 048
  12. GLICLAZIDE [Concomitant]
     Active Substance: GLICLAZIDE
     Indication: Diabetes mellitus
     Route: 048
  13. METFORMIN [Concomitant]
     Active Substance: METFORMIN HYDROCHLORIDE
     Indication: Diabetes mellitus
     Route: 048
  14. PRAVASTATIN [Concomitant]
     Active Substance: PRAVASTATIN
     Indication: Hypercholesterolaemia
     Route: 048
  15. ASPIRIN [Concomitant]
     Active Substance: ASPIRIN
     Indication: Cardiovascular event prophylaxis
     Route: 048
     Dates: end: 20220429
  16. VALACYCLOVIR HYDROCHLORIDE [Concomitant]
     Active Substance: VALACYCLOVIR HYDROCHLORIDE
     Indication: Infection prophylaxis
     Route: 048
     Dates: start: 20220222
  17. INSULIN HUMAN [Concomitant]
     Active Substance: INSULIN HUMAN
     Indication: Diabetes mellitus
     Dosage: INSULATARD FLEXPEN 100IE/ML PEN 3ML
     Route: 058
     Dates: start: 20220302
  18. NOVORAPID [Concomitant]
     Active Substance: INSULIN ASPART
     Indication: Diabetes mellitus
     Dosage: NOVORAPID 100E/ML PEN 3 ML
     Route: 058
     Dates: start: 20220302
  19. FLUTICASONE [Concomitant]
     Active Substance: FLUTICASONE
     Indication: Cough
     Route: 055
     Dates: start: 20220414
  20. ACETAMINOPHEN [Concomitant]
     Active Substance: ACETAMINOPHEN
     Indication: Pain prophylaxis
     Route: 048
  21. DOXYCYCLINE [Concomitant]
     Active Substance: DOXYCYCLINE
     Indication: Cough
     Route: 048
     Dates: start: 20220329, end: 20220404
  22. ALBUTEROL [Concomitant]
     Active Substance: ALBUTEROL
     Indication: Cough
     Route: 055
     Dates: start: 20220412

REACTIONS (2)
  - Pneumonia [Recovered/Resolved with Sequelae]
  - Influenza [Recovered/Resolved with Sequelae]

NARRATIVE: CASE EVENT DATE: 20220413
